FAERS Safety Report 5940675-9 (Version None)
Quarter: 2008Q4

REPORT INFORMATION
  Report Type: 
  Country: None (occurrence: None)
  Receive Date: 20081103
  Receipt Date: 20081103
  Transmission Date: 20090506
  Serious: Yes (Hospitalization)
  Sender: FDA-Public Use
  Company Number: None

PATIENT
  Age: 60 Year
  Sex: Male
  Weight: 142.7 kg

DRUGS (2)
  1. ETODOLAC [Suspect]
     Indication: PAIN
     Dosage: 400 MG TID PO
     Route: 048
     Dates: start: 20060226, end: 20081015
  2. CLOPIDOGREL [Suspect]
     Indication: CORONARY ARTERY DISEASE
     Dosage: 75 MG EVERY DAY PO
     Route: 048
     Dates: start: 20031104, end: 20080927

REACTIONS (2)
  - GASTROINTESTINAL HAEMORRHAGE [None]
  - RENAL FAILURE [None]
